FAERS Safety Report 19042621 (Version 2)
Quarter: 2021Q2

REPORT INFORMATION
  Report Type: Spontaneous
  Country: JP (occurrence: JP)
  Receive Date: 20210322
  Receipt Date: 20210401
  Transmission Date: 20210717
  Serious: Yes (Other)
  Sender: FDA-Public Use
  Company Number: JP-DSJP-DSJ-2021-107894AA

PATIENT
  Age: 93 Year
  Sex: Female

DRUGS (2)
  1. ALTEPLASE. [Concomitant]
     Active Substance: ALTEPLASE
     Indication: CEREBRAL INFARCTION
     Dosage: UNK
     Route: 042
  2. LIXIANA OD TABLETS 30MG [Suspect]
     Active Substance: EDOXABAN TOSYLATE
     Indication: ATRIAL FIBRILLATION
     Dosage: 30MG/DAY
     Route: 065

REACTIONS (6)
  - Cardiac failure [Unknown]
  - Depressed level of consciousness [Unknown]
  - Immobilisation syndrome [Unknown]
  - Urine output decreased [Unknown]
  - Peripheral artery occlusion [Unknown]
  - Pneumonia aspiration [Unknown]
